FAERS Safety Report 9308716 (Version 1)
Quarter: 2013Q2

REPORT INFORMATION
  Report Type: Spontaneous
  Country: US (occurrence: US)
  Receive Date: 20130524
  Receipt Date: 20130524
  Transmission Date: 20140414
  Serious: No
  Sender: FDA-Public Use
  Company Number: US-NOVEN-13US006712

PATIENT
  Age: 57 Year
  Sex: Female
  Weight: 51.7 kg

DRUGS (1)
  1. MINIVELLE [Suspect]
     Indication: MENOPAUSAL SYMPTOMS
     Dosage: UNK MG, UNK
     Route: 062
     Dates: start: 20130228, end: 20130423

REACTIONS (2)
  - Blood oestrogen abnormal [Unknown]
  - Off label use [Recovered/Resolved]
